FAERS Safety Report 25990854 (Version 1)
Quarter: 2025Q4

REPORT INFORMATION
  Report Type: Spontaneous
  Country: US (occurrence: US)
  Receive Date: 20251103
  Receipt Date: 20251103
  Transmission Date: 20260118
  Serious: Yes (Hospitalization)
  Sender: NOVO NORDISK
  Company Number: US-NOVOPROD-1552718

PATIENT
  Age: 90 Year
  Sex: Female

DRUGS (3)
  1. LEVEMIR [Suspect]
     Active Substance: INSULIN DETEMIR
     Indication: Diabetes mellitus
     Dosage: 20 IU, QD ( IN THE MORNING)
  2. LEVEMIR [Suspect]
     Active Substance: INSULIN DETEMIR
     Dosage: 20 IU, QD ( IN THE MORNING)
  3. NOVOLOG [Suspect]
     Active Substance: INSULIN ASPART
     Indication: Diabetes mellitus
     Dosage: 13IU  (5 IU, QD IN THE MORNING) (4 IU, BID  LUNCH AND EVENING)

REACTIONS (1)
  - Femur fracture [Unknown]

NARRATIVE: CASE EVENT DATE: 20180827
